FAERS Safety Report 10520326 (Version 3)
Quarter: 2014Q4

REPORT INFORMATION
  Report Type: Spontaneous
  Country: US (occurrence: US)
  Receive Date: 20141015
  Receipt Date: 20141211
  Transmission Date: 20150528
  Serious: Yes (Death, Other)
  Sender: FDA-Public Use
  Company Number: US-GLAXOSMITHKLINE-US2014GSK005080

PATIENT
  Age: 81 Year
  Sex: Female
  Weight: 60.77 kg

DRUGS (20)
  1. GABAPENTIN. [Concomitant]
     Active Substance: GABAPENTIN
  2. PANTOPRAZOLE [Concomitant]
     Active Substance: PANTOPRAZOLE SODIUM
  3. LISINOPRIL. [Concomitant]
     Active Substance: LISINOPRIL
  4. ALPRAZOLAM. [Concomitant]
     Active Substance: ALPRAZOLAM
  5. MAGNESIUM OXIDE. [Concomitant]
     Active Substance: MAGNESIUM OXIDE
  6. KLOR-CON [Concomitant]
     Active Substance: POTASSIUM CHLORIDE
  7. HALOPERIDOL. [Concomitant]
     Active Substance: HALOPERIDOL
  8. CIPROFLOXACINHYDROCHLORID [Concomitant]
  9. MORPHINE SULFATE CAPSULE [Concomitant]
  10. CLOPIDOGREL [Concomitant]
     Active Substance: CLOPIDOGREL BISULFATE
  11. CLONIDINE HYDROCHLORIDE. [Concomitant]
     Active Substance: CLONIDINE HYDROCHLORIDE
  12. METHIMAZOLE. [Concomitant]
     Active Substance: METHIMAZOLE
  13. BYSTOLIC [Concomitant]
     Active Substance: NEBIVOLOL HYDROCHLORIDE
  14. TAFINLAR [Suspect]
     Active Substance: DABRAFENIB MESYLATE
     Indication: LUNG NEOPLASM MALIGNANT
     Dosage: TWO 75 MG CAPLETS BID
     Route: 048
     Dates: start: 20140828, end: 201410
  15. FUROSEMIDE. [Concomitant]
     Active Substance: FUROSEMIDE
  16. OXYCODONE HYDROCHLORIDE. [Concomitant]
     Active Substance: OXYCODONE HYDROCHLORIDE
  17. LACTOBACILLUS ACIDOPHILUS\LACTOBACILLUS BULGARICUS [Concomitant]
     Active Substance: LACTOBACILLUS ACIDOPHILUS\LACTOBACILLUS DELBRUECKII SUBSP. BULGARICUS
  18. LEVOFLOXACIN. [Concomitant]
     Active Substance: LEVOFLOXACIN
  19. TRAZODONE [Concomitant]
     Active Substance: TRAZODONE HYDROCHLORIDE
  20. FENTANYL. [Concomitant]
     Active Substance: FENTANYL

REACTIONS (3)
  - Bone pain [Fatal]
  - Metastases to bone [Unknown]
  - Lung cancer metastatic [Fatal]

NARRATIVE: CASE EVENT DATE: 201409
